FAERS Safety Report 23427197 (Version 1)
Quarter: 2024Q1

REPORT INFORMATION
  Report Type: Spontaneous
  Country: CN (occurrence: CN)
  Receive Date: 20240122
  Receipt Date: 20240122
  Transmission Date: 20240410
  Serious: Yes (Death, Life-Threatening, Hospitalization, Other)
  Sender: FDA-Public Use
  Company Number: CN-SUN PHARMACEUTICAL INDUSTRIES LTD-2024R1-427477

PATIENT
  Age: 75 Year
  Sex: Male

DRUGS (5)
  1. OXALIPLATIN [Suspect]
     Active Substance: OXALIPLATIN
     Indication: Colon cancer
     Dosage: UNK (150 MG, 21 DAYS CYCLE,ONCE EVERY 3 WK))
     Route: 042
     Dates: start: 201907, end: 202101
  2. CAPECITABINE [Suspect]
     Active Substance: CAPECITABINE
     Indication: Colon cancer
     Dosage: 1.5 GRAM, BID (21 DAY CYCLE)
     Route: 042
     Dates: start: 201907, end: 202101
  3. CETUXIMAB [Suspect]
     Active Substance: CETUXIMAB
     Indication: Colon cancer
     Dosage: UNK (0.4 G, D1-8-15, 21 DAY CYCLE)
     Route: 042
     Dates: start: 201907, end: 202008
  4. CETUXIMAB [Suspect]
     Active Substance: CETUXIMAB
     Dosage: UNK (0.9 G ONCE EVERY 3 WK)
     Route: 042
     Dates: start: 202009, end: 202011
  5. CETUXIMAB [Suspect]
     Active Substance: CETUXIMAB
     Dosage: UNK (0.4 G ONCE A WEEK)
     Route: 042
     Dates: start: 202011, end: 202101

REACTIONS (2)
  - Interstitial lung disease [Fatal]
  - Respiratory failure [Fatal]

NARRATIVE: CASE EVENT DATE: 20210112
